FAERS Safety Report 7054171-1 (Version None)
Quarter: 2010Q4

REPORT INFORMATION
  Report Type: 
  Country: None (occurrence: None)
  Receive Date: 20101020
  Receipt Date: 20101012
  Transmission Date: 20110411
  Serious: Yes (Other)
  Sender: FDA-Public Use
  Company Number: US-NAPPMUNDI-USA-2010-0046473

PATIENT
  Age: 61 Year
  Sex: Male

DRUGS (4)
  1. OXYCONTIN [Suspect]
     Indication: PAIN
     Dosage: 80 MG, BID
     Dates: start: 20100831
  2. OXYCONTIN [Suspect]
     Indication: BACK INJURY
  3. OXYCONTIN [Suspect]
     Indication: ARTHRALGIA
  4. OXYCONTIN [Suspect]
     Indication: HEAD INJURY

REACTIONS (9)
  - BLISTER [None]
  - CHEMICAL BURN OF SKIN [None]
  - DRUG INEFFECTIVE [None]
  - HYPERSENSITIVITY [None]
  - PRODUCT ODOUR ABNORMAL [None]
  - PRODUCT TASTE ABNORMAL [None]
  - RASH ERYTHEMATOUS [None]
  - SKIN EXFOLIATION [None]
  - UNEVALUABLE EVENT [None]
